FAERS Safety Report 21935939 (Version 2)
Quarter: 2023Q4

REPORT INFORMATION
  Report Type: Spontaneous
  Country: US (occurrence: US)
  Receive Date: 20230201
  Receipt Date: 20231127
  Transmission Date: 20240110
  Serious: No
  Sender: FDA-Public Use
  Company Number: US-BIOVITRUM-2023US01656

PATIENT
  Age: 6 Month
  Sex: Male
  Weight: 7 kg

DRUGS (3)
  1. SYNAGIS [Suspect]
     Active Substance: PALIVIZUMAB
     Indication: Cerebellar ataxia
     Dosage: 15 MG/KG MONTHLY
     Route: 030
     Dates: start: 20221028
  2. SYNAGIS [Suspect]
     Active Substance: PALIVIZUMAB
     Indication: Low birth weight baby
  3. VITAMIN D3 10 [Concomitant]
     Indication: Product used for unknown indication
     Dosage: 10 (400)/ML DROPS

REACTIONS (2)
  - Head discomfort [Recovered/Resolved]
  - Crying [Recovered/Resolved]
